FAERS Safety Report 6061022-0 (Version None)
Quarter: 2009Q1

REPORT INFORMATION
  Report Type: 
  Country: None (occurrence: None)
  Receive Date: 20090129
  Receipt Date: 20090129
  Transmission Date: 20090719
  Serious: Yes (Hospitalization, Other)
  Sender: FDA-Public Use
  Company Number: None

PATIENT
  Sex: Female
  Weight: 72 kg

DRUGS (2)
  1. AROMASIN [Suspect]
     Indication: BREAST CANCER
     Dosage: 25 MG QD PO
     Route: 048
     Dates: start: 20080513, end: 20080610
  2. NAPROSYN [Concomitant]

REACTIONS (14)
  - AGITATION [None]
  - ANTIMITOCHONDRIAL ANTIBODY POSITIVE [None]
  - EXCORIATION [None]
  - FATIGUE [None]
  - HEPATIC FAILURE [None]
  - HEPATITIS CHOLESTATIC [None]
  - JAUNDICE [None]
  - OPEN WOUND [None]
  - PRURITUS [None]
  - SCAR [None]
  - SCRATCH [None]
  - SKIN HYPERPIGMENTATION [None]
  - VOMITING [None]
  - WEIGHT DECREASED [None]
